FAERS Safety Report 7838462-X (Version None)
Quarter: 2011Q4

REPORT INFORMATION
  Report Type: 
  Country: None (occurrence: None)
  Receive Date: 20111024
  Receipt Date: 20111017
  Transmission Date: 20120403
  Serious: Yes (Hospitalization)
  Sender: FDA-Public Use
  Company Number: JP-MERCK-1110USA03079

PATIENT
  Age: 72 Year
  Sex: Female
  Weight: 46 kg

DRUGS (6)
  1. LOXONIN [Suspect]
     Indication: JOINT SWELLING
     Route: 048
     Dates: start: 20110509, end: 20110511
  2. FOSMICIN [Suspect]
     Indication: DIARRHOEA
     Route: 048
     Dates: start: 20110507, end: 20110508
  3. LOPERAMIDE HCL [Suspect]
     Indication: DIARRHOEA
     Route: 048
     Dates: start: 20110507, end: 20110508
  4. PEPCID [Suspect]
     Indication: DIARRHOEA
     Route: 048
     Dates: start: 20110507, end: 20110508
  5. GASLON N [Suspect]
     Indication: JOINT SWELLING
     Route: 048
     Dates: start: 20110509, end: 20110511
  6. CEFAZOLIN SODIUM [Suspect]
     Indication: DIARRHOEA
     Route: 048
     Dates: start: 20110507, end: 20110508

REACTIONS (2)
  - PYREXIA [None]
  - DRUG ERUPTION [None]
